FAERS Safety Report 21333843 (Version 9)
Quarter: 2023Q2

REPORT INFORMATION
  Report Type: Report from Study
  Country: CA (occurrence: CA)
  Receive Date: 20220914
  Receipt Date: 20230503
  Transmission Date: 20230721
  Serious: Yes (Hospitalization, Other)
  Sender: FDA-Public Use
  Company Number: CA-RIGEL PHARMACEUTICALS, INC.-2022FOS000712

PATIENT
  Age: 27 Year
  Sex: Male

DRUGS (2)
  1. FOSTAMATINIB DISODIUM [Suspect]
     Active Substance: FOSTAMATINIB DISODIUM
     Indication: Immune thrombocytopenia
     Dosage: 100 MG, BID
     Route: 048
     Dates: start: 20220825, end: 202302
  2. FOSTAMATINIB DISODIUM [Suspect]
     Active Substance: FOSTAMATINIB DISODIUM
     Indication: Thrombocytopenia
     Dosage: 150 MG, BID
     Route: 048

REACTIONS (10)
  - Pleuritic pain [Unknown]
  - Anaemia [Unknown]
  - Thrombocytopenia [Unknown]
  - Malaise [Unknown]
  - Blood pressure abnormal [Unknown]
  - Peritonitis [Unknown]
  - Sepsis [Unknown]
  - Abdominal pain [Unknown]
  - Dyspnoea [Unknown]
  - Drug ineffective [Unknown]

NARRATIVE: CASE EVENT DATE: 20220905
